FAERS Safety Report 8881428 (Version 4)
Quarter: 2018Q4

REPORT INFORMATION
  Report Type: Spontaneous
  Country: US (occurrence: US)
  Receive Date: 20121101
  Receipt Date: 20181016
  Transmission Date: 20190205
  Serious: Yes (Other)
  Sender: FDA-Public Use
  Company Number: US-PFIZER INC-2012269308

PATIENT
  Age: 59 Year
  Sex: Female
  Weight: 86.18 kg

DRUGS (12)
  1. CELEBREX [Suspect]
     Active Substance: CELECOXIB
     Indication: DERMATOMYOSITIS
     Dosage: 200 MG, 2X/DAY
     Route: 048
     Dates: end: 20121023
  2. PHENOBARBITAL. [Concomitant]
     Active Substance: PHENOBARBITAL
     Indication: SEIZURE
     Dosage: UNK
  3. REGLAN [Concomitant]
     Active Substance: METOCLOPRAMIDE HYDROCHLORIDE
     Dosage: UNK
  4. CELLCEPT [Concomitant]
     Active Substance: MYCOPHENOLATE MOFETIL\MYCOPHENOLATE MOFETIL HYDROCHLORIDE
     Dosage: UNK
  5. PREDNISONE. [Concomitant]
     Active Substance: PREDNISONE
     Dosage: 100 MG, DAILY
  6. PREDNISONE. [Concomitant]
     Active Substance: PREDNISONE
     Dosage: 5 MG, ALTERNATE DAY
  7. LIBRAX [Concomitant]
     Active Substance: CHLORDIAZEPOXIDE HYDROCHLORIDE\CLIDINIUM BROMIDE
     Dosage: UNK
  8. PREDNISONE. [Concomitant]
     Active Substance: PREDNISONE
     Dosage: 10 MG, ALTERNATE DAY
  9. NEURONTIN [Concomitant]
     Active Substance: GABAPENTIN
     Dosage: UNK
  10. PROTONIX [Concomitant]
     Active Substance: PANTOPRAZOLE SODIUM
     Dosage: UNK
  11. PLAQUENIL [Concomitant]
     Active Substance: HYDROXYCHLOROQUINE SULFATE
     Dosage: UNK
  12. CELEBREX [Suspect]
     Active Substance: CELECOXIB
     Dosage: UNK
     Dates: end: 201702

REACTIONS (6)
  - Salivary gland disorder [Unknown]
  - Brain neoplasm [Unknown]
  - Product use in unapproved indication [Unknown]
  - Central nervous system lymphoma [Unknown]
  - Compression fracture [Unknown]
  - Fibromyalgia [Unknown]
